FAERS Safety Report 9216299 (Version 1)
Quarter: 2013Q2

REPORT INFORMATION
  Report Type: Spontaneous
  Country: US (occurrence: None)
  Receive Date: 20130404
  Receipt Date: 20130404
  Transmission Date: 20140414
  Serious: Yes (Other)
  Sender: FDA-Public Use
  Company Number: ADR-2013-00571

PATIENT
  Sex: 0

DRUGS (1)
  1. LIORESAL [Suspect]
     Dosage: 250 MCG/DAY

REACTIONS (4)
  - Accidental overdose [None]
  - Vision blurred [None]
  - Incorrect dose administered by device [None]
  - Drug dispensing error [None]
